FAERS Safety Report 5297430-5 (Version None)
Quarter: 2007Q2

REPORT INFORMATION
  Report Type: 
  Country: None (occurrence: None)
  Receive Date: 20070416
  Receipt Date: 20070411
  Transmission Date: 20071010
  Serious: Yes (Death)
  Sender: FDA-Public Use
  Company Number: 2007UW07157

PATIENT
  Age: 23378 Day
  Sex: Female

DRUGS (5)
  1. SEROQUEL [Suspect]
     Indication: DEPRESSION
     Route: 048
     Dates: start: 20070314, end: 20070314
  2. SEROQUEL [Suspect]
     Route: 048
     Dates: start: 20070101, end: 20070313
  3. TRAZODONE HCL [Suspect]
     Route: 048
     Dates: start: 20070314, end: 20070314
  4. PERCOCET [Concomitant]
  5. ABILIFY [Concomitant]
     Indication: DEPRESSION

REACTIONS (1)
  - INTENTIONAL OVERDOSE [None]
